FAERS Safety Report 23531810 (Version 1)
Quarter: 2024Q1

REPORT INFORMATION
  Report Type: Spontaneous
  Country: IN (occurrence: IN)
  Receive Date: 20240216
  Receipt Date: 20240216
  Transmission Date: 20240410
  Serious: Yes (Life-Threatening, Hospitalization, Other)
  Sender: FDA-Public Use
  Company Number: IN-COSETTE-CP2024IN000022

PATIENT
  Age: 52 Hour
  Sex: Male
  Weight: 1.62 kg

DRUGS (1)
  1. BENICAR [Suspect]
     Active Substance: OLMESARTAN MEDOXOMIL
     Indication: Hypertension
     Route: 064

REACTIONS (3)
  - Premature baby [Unknown]
  - Acute kidney injury [Recovered/Resolved]
  - Foetal exposure during pregnancy [Unknown]
